FAERS Safety Report 7391123-6 (Version None)
Quarter: 2011Q2

REPORT INFORMATION
  Report Type: 
  Country: None (occurrence: None)
  Receive Date: 20110404
  Receipt Date: 20110321
  Transmission Date: 20111010
  Serious: Yes (Hospitalization, Other)
  Sender: FDA-Public Use
  Company Number: GB-ELI_LILLY_AND_COMPANY-GB200705007570

PATIENT
  Sex: Male
  Weight: 3.37 kg

DRUGS (4)
  1. OLANZAPINE [Suspect]
     Dosage: 10 MG, DAILY (1/D)
     Route: 064
  2. PAROXETINE HYDROCHLORIDE [Concomitant]
     Dosage: 40 MG, UNK
     Route: 065
  3. OLANZAPINE [Suspect]
     Dosage: 10 MG, DAILY (1/D)
     Route: 064
  4. PAROXETINE HYDROCHLORIDE [Concomitant]
     Dosage: 40 MG, UNK
     Route: 065

REACTIONS (13)
  - POSTURE ABNORMAL [None]
  - FOETAL DISTRESS SYNDROME [None]
  - DRUG EXPOSURE DURING PREGNANCY [None]
  - HYPERTONIA NEONATAL [None]
  - HYPOGLYCAEMIA NEONATAL [None]
  - INAPPROPRIATE ANTIDIURETIC HORMONE SECRETION [None]
  - SALIVARY HYPERSECRETION [None]
  - NEONATAL RESPIRATORY DISTRESS SYNDROME [None]
  - STREPTOCOCCAL SEPSIS [None]
  - OPISTHOTONUS [None]
  - AGITATION NEONATAL [None]
  - TREMOR NEONATAL [None]
  - DRUG WITHDRAWAL SYNDROME NEONATAL [None]
